FAERS Safety Report 25951263 (Version 1)
Quarter: 2025Q4

REPORT INFORMATION
  Report Type: Spontaneous
  Country: US (occurrence: US)
  Receive Date: 20251023
  Receipt Date: 20251023
  Transmission Date: 20260118
  Serious: Yes (Hospitalization, Other)
  Sender: RANBAXY
  Company Number: US-SUN PHARMACEUTICAL INDUSTRIES LTD-2025R1-532537

PATIENT
  Age: 69 Year
  Sex: Male

DRUGS (1)
  1. NAPROXEN [Suspect]
     Active Substance: NAPROXEN
     Indication: Discomfort
     Dosage: UNK
     Route: 065

REACTIONS (2)
  - Duodenal ulcer [Recovering/Resolving]
  - Peritonitis [Recovering/Resolving]
